FAERS Safety Report 11247975 (Version 1)
Quarter: 2015Q3

REPORT INFORMATION
  Report Type: Spontaneous
  Country: GB (occurrence: None)
  Receive Date: 20150706
  Receipt Date: 20150706
  Transmission Date: 20151125
  Serious: Yes (Disabling)
  Sender: FDA-Public Use
  Company Number: GB2015K3935SPO

PATIENT
  Age: 60 Year
  Sex: Female
  Weight: 66.22 kg

DRUGS (2)
  1. LANSOPRAZOLE 30 MG GASTRO-RESISTANT [Suspect]
     Active Substance: LANSOPRAZOLE
     Indication: GASTROOESOPHAGEAL REFLUX DISEASE
     Route: 048
     Dates: start: 201111
  2. LANSOPRAZOLE 30 MG GASTRO-RESISTANT [Suspect]
     Active Substance: LANSOPRAZOLE
     Indication: HIATUS HERNIA
     Route: 048
     Dates: start: 201111

REACTIONS (4)
  - Aphasia [None]
  - Cerebral atrophy [None]
  - Dyspraxia [None]
  - Anxiety [None]

NARRATIVE: CASE EVENT DATE: 20111228
